FAERS Safety Report 24937869 (Version 3)
Quarter: 2025Q2

REPORT INFORMATION
  Report Type: Spontaneous
  Country: DE (occurrence: DE)
  Receive Date: 20250206
  Receipt Date: 20250521
  Transmission Date: 20250716
  Serious: Yes (Other)
  Sender: MYLAN
  Company Number: DE-BRISTOL-MYERS SQUIBB COMPANY-2025-005080

PATIENT
  Age: 38 Year
  Sex: Male

DRUGS (7)
  1. VERAPAMIL [Suspect]
     Active Substance: VERAPAMIL HYDROCHLORIDE
     Indication: Product used for unknown indication
     Dosage: 40 MILLIGRAM, BID (1-0-1)
     Dates: start: 2023
  2. VERAPAMIL [Suspect]
     Active Substance: VERAPAMIL HYDROCHLORIDE
     Dosage: 80 MILLIGRAM, QD
     Dates: start: 202404
  3. CAMZYOS [Suspect]
     Active Substance: MAVACAMTEN
     Indication: Hypertrophic cardiomyopathy
  4. CAMZYOS [Suspect]
     Active Substance: MAVACAMTEN
     Dosage: 5 MILLIGRAM, QD
     Dates: start: 20240219
  5. CAMZYOS [Suspect]
     Active Substance: MAVACAMTEN
     Dosage: 10 MILLIGRAM, QD
     Dates: start: 202405
  6. DAPAGLIFLOZIN [Concomitant]
     Active Substance: DAPAGLIFLOZIN
     Indication: Product used for unknown indication
     Dosage: 10 MILLIGRAM, QD
  7. XARELTO [Concomitant]
     Active Substance: RIVAROXABAN
     Indication: Product used for unknown indication
     Dosage: 20 MILLIGRAM, QD

REACTIONS (3)
  - Atrial fibrillation [Recovered/Resolved]
  - Dyspnoea [Recovering/Resolving]
  - Ejection fraction decreased [Recovered/Resolved]

NARRATIVE: CASE EVENT DATE: 20240401
